FAERS Safety Report 25185930 (Version 2)
Quarter: 2025Q2

REPORT INFORMATION
  Report Type: Report from Study
  Country: US (occurrence: US)
  Receive Date: 20250410
  Receipt Date: 20250411
  Transmission Date: 20250717
  Serious: No
  Sender: BRISTOL MYERS SQUIBB
  Company Number: US-BRISTOL-MYERS SQUIBB COMPANY-2025-053754

PATIENT
  Age: 73 Year
  Sex: Female
  Weight: 72.57 kg

DRUGS (1)
  1. ELIQUIS [Suspect]
     Active Substance: APIXABAN
     Indication: Atrial fibrillation
     Route: 048
     Dates: start: 20250404

REACTIONS (5)
  - Cough [Unknown]
  - Off label use [Unknown]
  - Bronchitis [Unknown]
  - Laryngitis [Unknown]
  - Swelling face [Unknown]

NARRATIVE: CASE EVENT DATE: 20250401
